FAERS Safety Report 26047624 (Version 2)
Quarter: 2025Q4

REPORT INFORMATION
  Report Type: Spontaneous
  Country: US (occurrence: US)
  Receive Date: 20251114
  Receipt Date: 20251124
  Transmission Date: 20260118
  Serious: Yes (Other)
  Sender: INCYTE
  Company Number: US-EVENT-004863

PATIENT

DRUGS (1)
  1. NIKTIMVO [Suspect]
     Active Substance: AXATILIMAB-CSFR
     Indication: Graft versus host disease in gastrointestinal tract
     Dosage: UNK
     Route: 065

REACTIONS (1)
  - Gastrointestinal haemorrhage [Unknown]
